FAERS Safety Report 15540603 (Version 3)
Quarter: 2019Q2

REPORT INFORMATION
  Report Type: Spontaneous
  Country: PL (occurrence: PL)
  Receive Date: 20181023
  Receipt Date: 20190503
  Transmission Date: 20190711
  Serious: Yes (Other)
  Sender: FDA-Public Use
  Company Number: PL-ROCHE-2200329

PATIENT
  Age: 76 Year
  Sex: Male
  Weight: 92.6 kg

DRUGS (8)
  1. ESBRIET [Suspect]
     Active Substance: PIRFENIDONE
     Dosage: 3X801MG CURRENTLY
     Route: 048
  2. ROSWERA [Concomitant]
     Active Substance: ROSUVASTATIN
     Indication: HYPERCHOLESTEROLAEMIA
     Route: 048
     Dates: start: 20110406
  3. ESBRIET [Suspect]
     Active Substance: PIRFENIDONE
     Indication: PULMONARY FIBROSIS
     Route: 065
  4. ESBRIET [Suspect]
     Active Substance: PIRFENIDONE
     Dosage: 3 CAPSULES 3 TIMES PER DAY
     Route: 048
     Dates: start: 20171122
  5. ESBRIET [Suspect]
     Active Substance: PIRFENIDONE
     Dosage: INCREASED TO 3X3 CAPSULES
     Route: 048
  6. ESBRIET [Suspect]
     Active Substance: PIRFENIDONE
     Dosage: 3X2 CAPSULES
     Route: 065
  7. ESBRIET [Suspect]
     Active Substance: PIRFENIDONE
     Dosage: REDUCED DOSE 3X1 CAPSULE 267MG
     Route: 048
     Dates: start: 201805
  8. ESBRIET [Suspect]
     Active Substance: PIRFENIDONE
     Dosage: REDUCTION OF PIRFENIDONE DOSING TO 3 X 1 CAPSULES
     Route: 065
     Dates: start: 20180710

REACTIONS (7)
  - Rash maculo-papular [Recovered/Resolved]
  - Rash maculo-papular [Recovered/Resolved]
  - Rash pustular [Recovered/Resolved]
  - Rash follicular [Recovering/Resolving]
  - Cough [Unknown]
  - Productive cough [Recovered/Resolved]
  - Exercise tolerance decreased [Unknown]

NARRATIVE: CASE EVENT DATE: 201805
